FAERS Safety Report 9405230 (Version 3)
Quarter: 2014Q2

REPORT INFORMATION
  Report Type: Report from Study
  Country: US (occurrence: US)
  Receive Date: 20130717
  Receipt Date: 20140425
  Transmission Date: 20141212
  Serious: Yes (Hospitalization)
  Sender: FDA-Public Use
  Company Number: GXBR2013US001335

PATIENT
  Age: 31 Year
  Sex: Female
  Weight: 90.7 kg

DRUGS (7)
  1. ENOXAPARIN SODIUM [Suspect]
     Indication: FACTOR V LEIDEN MUTATION
     Dosage: 40 MG, QD
     Dates: start: 20130701
  2. HUMULIN N [Concomitant]
     Indication: DIABETES MELLITUS
     Dosage: 10 U, BID
     Route: 058
  3. HUMULIN R [Concomitant]
     Indication: DIABETES MELLITUS
     Dosage: 20 U, TID
     Route: 058
  4. FOLIC ACID [Concomitant]
     Indication: PREGNANCY
     Dosage: UNK DF, BID
  5. ASPIRIN [Concomitant]
     Dosage: 325 MG, QD
  6. PRENATAL VITAMINS [Concomitant]
     Indication: PREGNANCY
     Dosage: 1 DF, QD
  7. PROGESTERONE [Concomitant]
     Indication: PREGNANCY
     Dosage: 200 MG, QD
     Route: 067

REACTIONS (4)
  - Dyspnoea [Recovered/Resolved]
  - Rash pruritic [Recovered/Resolved]
  - Pain of skin [Recovered/Resolved]
  - Maternal exposure during pregnancy [Not Recovered/Not Resolved]
